FAERS Safety Report 5867150-4 (Version None)
Quarter: 2008Q3

REPORT INFORMATION
  Report Type: 
  Country: None (occurrence: None)
  Receive Date: 20080902
  Receipt Date: 20080827
  Transmission Date: 20090109
  Serious: Yes (Hospitalization)
  Sender: FDA-Public Use
  Company Number: US-BRISTOL-MYERS SQUIBB COMPANY-14268379

PATIENT
  Age: 45 Year
  Sex: Male
  Weight: 79 kg

DRUGS (7)
  1. ERBITUX [Suspect]
     Indication: COLON CANCER METASTATIC
     Dosage: THERAPY STARTED ON 09MAY08.
     Route: 042
     Dates: start: 20080705, end: 20080705
  2. OXALIPLATIN [Suspect]
     Indication: COLON CANCER METASTATIC
     Dosage: THERAPY INITIATED ON 09MAY08.
     Route: 042
     Dates: start: 20080705, end: 20080705
  3. XELODA [Suspect]
     Indication: COLON CANCER METASTATIC
     Dosage: THERAPY INITIATED ON 09MAY08.
     Route: 048
     Dates: start: 20080705, end: 20080705
  4. AVASTIN [Suspect]
     Indication: COLON CANCER METASTATIC
     Dosage: THERAPY INITIATED ON 09MAY08.
     Route: 042
     Dates: start: 20080705, end: 20080705
  5. NEXIUM [Concomitant]
     Route: 048
  6. SENNA [Concomitant]
     Dosage: 1 DF=5(UNITS NOT SPECIFIED)
     Route: 048
  7. TETRACYCLINE [Concomitant]
     Route: 048

REACTIONS (7)
  - ABDOMINAL PAIN [None]
  - BLOOD AMYLASE INCREASED [None]
  - BLOOD BILIRUBIN INCREASED [None]
  - DIARRHOEA [None]
  - LIPASE INCREASED [None]
  - LIVER FUNCTION TEST ABNORMAL [None]
  - NAUSEA [None]
